FAERS Safety Report 17423701 (Version 6)
Quarter: 2020Q4

REPORT INFORMATION
  Report Type: Report from Study
  Country: None (occurrence: CH)
  Receive Date: 20200217
  Receipt Date: 20201027
  Transmission Date: 20210113
  Serious: Yes (Hospitalization)
  Sender: FDA-Public Use
  Company Number: CH-ABBVIE-20K-151-3276046-00

PATIENT
  Age: 72 Year
  Sex: Male
  Weight: 71 kg

DRUGS (14)
  1. DUODOPA [Suspect]
     Active Substance: CARBIDOPA\LEVODOPA
     Dosage: MD: 8 ML, CRD: 1.5 ML/H, CRN: 0 ML/H, ED: 1.5 ML?16 H THERAPY
     Route: 050
     Dates: start: 202002, end: 20200220
  2. ATROVENT [Concomitant]
     Active Substance: IPRATROPIUM BROMIDE
     Indication: PRODUCT USED FOR UNKNOWN INDICATION
     Dosage: INHALATION VAPOUR, SOLUTION
  3. VITAMIN B12 [Concomitant]
     Active Substance: CYANOCOBALAMIN
     Indication: PRODUCT USED FOR UNKNOWN INDICATION
     Route: 058
  4. LEPONEX [Concomitant]
     Active Substance: CLOZAPINE
     Indication: PRODUCT USED FOR UNKNOWN INDICATION
     Dosage: 0,25 - 0 - 0,5 - 0
  5. VENTOLIN [Concomitant]
     Active Substance: ALBUTEROL SULFATE
     Indication: PRODUCT USED FOR UNKNOWN INDICATION
  6. DUODOPA [Suspect]
     Active Substance: CARBIDOPA\LEVODOPA
     Dosage: MD: 11 ML, CRD: 3 ML/H, CRN: 0 ML/H, ED: 1.8 ML?16 H THERAPY
     Route: 050
     Dates: start: 20171020, end: 20190304
  7. DUODOPA [Suspect]
     Active Substance: CARBIDOPA\LEVODOPA
     Dosage: MD: 8 ML, CRD: 2.5 ML/H, CRN: 0 ML/H, ED: 1.5 ML?16 H THERAPY
     Route: 050
     Dates: start: 20190304, end: 202002
  8. RUDOLAC [Concomitant]
     Indication: PRODUCT USED FOR UNKNOWN INDICATION
  9. DUODOPA [Suspect]
     Active Substance: CARBIDOPA\LEVODOPA
     Indication: PARKINSON^S DISEASE
     Route: 050
     Dates: start: 20120716, end: 20171020
  10. DUODOPA [Suspect]
     Active Substance: CARBIDOPA\LEVODOPA
     Dosage: MD 8 ML,CONTINUOUS RATE-DAY 2.3 ML/H,CONTINUOUS?RATE-NIGHT 0ML/H, ED 1.5 ML/ 16H THERAPY
     Route: 050
     Dates: start: 20200304, end: 2020
  11. VENTOLIN [Concomitant]
     Active Substance: ALBUTEROL SULFATE
     Indication: PRODUCT USED FOR UNKNOWN INDICATION
     Dosage: INHALATION VAPOUR, SOLUTION
  12. DUODOPA [Suspect]
     Active Substance: CARBIDOPA\LEVODOPA
     Dosage: MD: 8 ML, CRD: 2.0  ML/H, CRN: 0 ML/H, ED: 1.5 ML?16 H THERAPY
     Route: 050
     Dates: start: 20200220, end: 20200303
  13. DUODOPA [Suspect]
     Active Substance: CARBIDOPA\LEVODOPA
     Dosage: MD:8ML,CRD:2.5 ML/H,CRN:0 ML/H,ED:1.5 ML,ED BLOCKING TIME:1 H,LL:LOCK LEVEL 0 16H THERAPY
     Route: 050
     Dates: start: 2020
  14. VITAMIN D3 STREULI [Concomitant]
     Active Substance: CHOLECALCIFEROL
     Indication: PRODUCT USED FOR UNKNOWN INDICATION
     Dosage: 4000 IU/ ML 1 X 10 DROPS

REACTIONS (8)
  - Malaise [Recovered/Resolved]
  - Malaise [Recovering/Resolving]
  - Incorrect dose administered [Recovered/Resolved]
  - Vomiting [Recovered/Resolved]
  - Pneumonia [Recovered/Resolved]
  - Akinesia [Recovering/Resolving]
  - Device difficult to use [Unknown]
  - Hallucination [Recovering/Resolving]

NARRATIVE: CASE EVENT DATE: 2020
